FAERS Safety Report 24188119 (Version 1)
Quarter: 2024Q3

REPORT INFORMATION
  Report Type: Spontaneous
  Country: PL (occurrence: PL)
  Receive Date: 20240808
  Receipt Date: 20240808
  Transmission Date: 20241017
  Serious: Yes (Hospitalization)
  Sender: ACCORD
  Company Number: None

PATIENT
  Age: 77 Year
  Sex: Male
  Weight: 69 kg

DRUGS (1)
  1. METHOTREXATE [Suspect]
     Active Substance: METHOTREXATE
     Indication: Rheumatoid arthritis
     Dosage: FOR 10 DAYS
     Dates: start: 20201109, end: 20201119

REACTIONS (4)
  - Mouth ulceration [Recovered/Resolved]
  - Leukopenia [Recovered/Resolved]
  - Mouth haemorrhage [Recovered/Resolved]
  - Anaemia [Recovered/Resolved]

NARRATIVE: CASE EVENT DATE: 20201119
